FAERS Safety Report 12168231 (Version 6)
Quarter: 2019Q2

REPORT INFORMATION
  Report Type: Spontaneous
  Country: US (occurrence: US)
  Receive Date: 20160310
  Receipt Date: 20190628
  Transmission Date: 20190711
  Serious: No
  Sender: FDA-Public Use
  Company Number: US-PFIZER INC-2016131375

PATIENT
  Age: 56 Year
  Sex: Female

DRUGS (2)
  1. LYRICA [Suspect]
     Active Substance: PREGABALIN
     Dosage: 1 DF, UNK
  2. LYRICA [Suspect]
     Active Substance: PREGABALIN
     Dosage: UNK

REACTIONS (11)
  - Withdrawal syndrome [Unknown]
  - Pain [Unknown]
  - Nasopharyngitis [Unknown]
  - Feeling cold [Unknown]
  - Irritability [Unknown]
  - Burning sensation [Unknown]
  - Breast disorder [Unknown]
  - Bladder spasm [Unknown]
  - Intentional product misuse [Unknown]
  - Poor quality sleep [Unknown]
  - Neuralgia [Unknown]
